FAERS Safety Report 5741378-6 (Version None)
Quarter: 2008Q2

REPORT INFORMATION
  Report Type: 
  Country: None (occurrence: None)
  Receive Date: 20080514
  Receipt Date: 20080430
  Transmission Date: 20081010
  Serious: Yes (Hospitalization)
  Sender: FDA-Public Use
  Company Number: 2008US001253

PATIENT
  Age: 15 Year
  Sex: Female

DRUGS (1)
  1. PROGRAF [Suspect]
     Indication: LIVER TRANSPLANT
     Dates: start: 20030601, end: 20041101

REACTIONS (34)
  - ANOREXIA [None]
  - ASCITES [None]
  - BONE PAIN [None]
  - CACHEXIA [None]
  - CHOLESTASIS [None]
  - COAGULOPATHY [None]
  - CONJUNCTIVAL HAEMORRHAGE [None]
  - ELECTROCARDIOGRAM ABNORMAL [None]
  - ELECTROCARDIOGRAM QT PROLONGED [None]
  - ELECTROCARDIOGRAM ST SEGMENT ABNORMAL [None]
  - ELECTROLYTE IMBALANCE [None]
  - FATIGUE [None]
  - FEELING COLD [None]
  - GASTROINTESTINAL HAEMORRHAGE [None]
  - GENERAL PHYSICAL HEALTH DETERIORATION [None]
  - GINGIVAL HYPERPLASIA [None]
  - GLOMERULONEPHRITIS ACUTE [None]
  - HAEMODIALYSIS [None]
  - HYPERSPLENISM [None]
  - LEFT VENTRICULAR HYPERTROPHY [None]
  - LIVER TRANSPLANT [None]
  - LIVER TRANSPLANT REJECTION [None]
  - MALNUTRITION [None]
  - MUCOSAL HAEMORRHAGE [None]
  - PARAKERATOSIS [None]
  - PORTAL HYPERTENSION [None]
  - PULMONARY VALVE INCOMPETENCE [None]
  - QUALITY OF LIFE DECREASED [None]
  - RASH [None]
  - RENAL TRANSPLANT [None]
  - SEPSIS [None]
  - SKIN OEDEMA [None]
  - THROMBOCYTOPENIA [None]
  - VITAMIN C DEFICIENCY [None]
